FAERS Safety Report 23948324 (Version 4)
Quarter: 2024Q4

REPORT INFORMATION
  Report Type: Spontaneous
  Country: US (occurrence: US)
  Receive Date: 20240607
  Receipt Date: 20241205
  Transmission Date: 20250115
  Serious: Yes (Hospitalization, Other)
  Sender: ARGENX BVBA
  Company Number: US-ARGENX-2024-ARGX-US003991

PATIENT

DRUGS (2)
  1. VYVGART [Suspect]
     Active Substance: EFGARTIGIMOD ALFA-FCAB
     Indication: Myasthenia gravis
     Dosage: UNK
     Route: 042
     Dates: start: 202306, end: 202310
  2. VYVGART [Suspect]
     Active Substance: EFGARTIGIMOD ALFA-FCAB
     Dosage: UNK,RESTARTED
     Route: 042

REACTIONS (7)
  - Adverse drug reaction [Unknown]
  - Myasthenia gravis [Unknown]
  - Prostate cancer [Unknown]
  - Myasthenia gravis [Unknown]
  - Myasthenia gravis [Not Recovered/Not Resolved]
  - Dyskinesia [Unknown]
  - Therapeutic product effect delayed [Recovering/Resolving]

NARRATIVE: CASE EVENT DATE: 20230901
